FAERS Safety Report 9701280 (Version 1)
Quarter: 2013Q4

REPORT INFORMATION
  Report Type: Spontaneous
  Country: US (occurrence: US)
  Receive Date: 20131121
  Receipt Date: 20131121
  Transmission Date: 20140711
  Serious: No
  Sender: FDA-Public Use
  Company Number: US-GILEAD-2008-0016268

PATIENT
  Sex: Female
  Weight: 90.72 kg

DRUGS (12)
  1. LETAIRIS [Suspect]
     Indication: PULMONARY ARTERIAL HYPERTENSION
     Route: 048
     Dates: start: 20080403, end: 20080410
  2. LASIX [Concomitant]
     Route: 048
  3. SERTRALINE [Concomitant]
     Route: 048
  4. REVATIO [Concomitant]
     Route: 048
  5. METOPROLOL [Concomitant]
     Route: 048
  6. LISINOPRIL [Concomitant]
     Route: 048
  7. NEXIUM [Concomitant]
     Route: 048
  8. SPIRONOLACTONE [Concomitant]
     Route: 048
  9. WARFARIN [Concomitant]
     Route: 048
  10. IRON [Concomitant]
     Route: 048
  11. DIGITEK [Concomitant]
     Route: 048
  12. POTASSIUM CHLORIDE [Concomitant]
     Route: 048

REACTIONS (2)
  - Oedema [Unknown]
  - Swelling [Unknown]
